FAERS Safety Report 4440873-X (Version None)
Quarter: 2004Q3

REPORT INFORMATION
  Report Type: 
  Country: None (occurrence: None)
  Receive Date: 20040728
  Receipt Date: 20040316
  Transmission Date: 20050211
  Serious: No
  Sender: FDA-Public Use
  Company Number: USA040157698

PATIENT
  Age: 7 Year
  Sex: Male
  Weight: 24 kg

DRUGS (2)
  1. STRATTERA [Suspect]
     Indication: ATTENTION DEFICIT/HYPERACTIVITY DISORDER
     Dosage: 10 MG/ 23 DAY
     Dates: start: 20030101
  2. FLOVENT [Concomitant]

REACTIONS (5)
  - DRUG INEFFECTIVE [None]
  - DRUG INTERACTION [None]
  - HEADACHE [None]
  - RESPIRATORY DISORDER [None]
  - RESPIRATORY TRACT INFECTION [None]
